FAERS Safety Report 7734022-X (Version None)
Quarter: 2011Q3

REPORT INFORMATION
  Report Type: 
  Country: None (occurrence: None)
  Receive Date: 20110907
  Receipt Date: 20110825
  Transmission Date: 20111222
  Serious: Yes (Hospitalization)
  Sender: FDA-Public Use
  Company Number: US-ROCHE-702910

PATIENT
  Sex: Female

DRUGS (14)
  1. HYDROCODONE [Concomitant]
     Dates: start: 20080424
  2. PAMELOR [Concomitant]
     Dates: start: 20091211
  3. PREDNISONE [Suspect]
     Route: 048
     Dates: start: 20070326
  4. LISINOPRIL [Concomitant]
     Dates: start: 20081124
  5. METOPROLOL [Concomitant]
     Dates: start: 20071215
  6. PRAVASTATIN [Concomitant]
     Dates: start: 20081225
  7. NITROGLYCERIN [Concomitant]
  8. OXYCONTIN [Concomitant]
     Dates: start: 20091211
  9. XANAX [Concomitant]
     Dates: start: 20070501
  10. MYCOPHENOLATE MOFETIL [Suspect]
     Route: 048
     Dates: start: 20070120
  11. CYCLOSPORINE [Suspect]
     Route: 048
     Dates: start: 20070120
  12. NEURONTIN [Concomitant]
     Dates: start: 20091211
  13. COLACE [Concomitant]
     Dates: start: 20070123
  14. PEPCID [Concomitant]
     Dates: start: 20080206

REACTIONS (11)
  - MITRAL VALVE INCOMPETENCE [None]
  - NAUSEA [None]
  - LEFT VENTRICULAR HYPERTROPHY [None]
  - ELECTROCARDIOGRAM T WAVE ABNORMAL [None]
  - TRANSPLANT REJECTION [None]
  - URINARY TRACT INFECTION [None]
  - STREPTOCOCCUS TEST POSITIVE [None]
  - SINUS TACHYCARDIA [None]
  - ABDOMINAL PAIN [None]
  - CHEST PAIN [None]
  - PYELONEPHRITIS [None]
